FAERS Safety Report 8582079-9 (Version None)
Quarter: 2012Q3

REPORT INFORMATION
  Report Type: 
  Country: None (occurrence: None)
  Receive Date: 20120809
  Receipt Date: 20120803
  Transmission Date: 20120928
  Serious: Yes (Other)
  Sender: FDA-Public Use
  Company Number: US-PFIZER INC-2012190791

PATIENT
  Age: 45 Year

DRUGS (1)
  1. DILANTIN-125 [Suspect]
     Dosage: 100 MG, 3 HS

REACTIONS (1)
  - MAJOR DEPRESSION [None]
